FAERS Safety Report 10247107 (Version 1)
Quarter: 2014Q2

REPORT INFORMATION
  Report Type: Spontaneous
  Country: GB (occurrence: None)
  Receive Date: 20140617
  Receipt Date: 20140617
  Transmission Date: 20141212
  Serious: Yes (Hospitalization)
  Sender: FDA-Public Use
  Company Number: AUR-APL-2014-06390

PATIENT
  Age: 74 Year
  Sex: Female

DRUGS (6)
  1. CEFALEXIN (CEFALEXIN) [Suspect]
     Indication: LOWER RESPIRATORY TRACT INFECTION
     Route: 048
     Dates: start: 20140522, end: 20140522
  2. ASPIRIN (ACETYLSALICYLIC ACID) [Concomitant]
  3. BECLOMETHASONE (BECLOMETASONE DIPROPIONATE) [Concomitant]
  4. FLECAINIDE (FLECAINIDE) [Concomitant]
  5. FORMOTEROL (FORMOTHEROL) [Concomitant]
  6. SALBUTAMOL (SALBUTAMOL) [Concomitant]

REACTIONS (5)
  - Wheezing [None]
  - Anaphylactic reaction [None]
  - Dyspnoea [None]
  - Swollen tongue [None]
  - Rash [None]
